FAERS Safety Report 7809871-X (Version None)
Quarter: 2011Q4

REPORT INFORMATION
  Report Type: 
  Country: None (occurrence: None)
  Receive Date: 20111012
  Receipt Date: 20111005
  Transmission Date: 20120403
  Serious: Yes (Hospitalization)
  Sender: FDA-Public Use
  Company Number: HU-PFIZER INC-2011015333

PATIENT
  Age: 66 Year
  Sex: Male
  Weight: 90 kg

DRUGS (25)
  1. ENALAPRIL MALEATE AND HYDROCHLOROTHIAZIDE [Concomitant]
     Dosage: UNK
  2. SALBUTAMOL [Concomitant]
     Dosage: UNK
  3. TRENTAL ^ALBERT-ROUSSEL^ [Concomitant]
     Dosage: UNK
  4. ENALAPRIL MALEATE [Concomitant]
     Dosage: UNK
  5. GLICLAZIDE [Concomitant]
     Dosage: UNK
  6. TAMSULOSIN [Concomitant]
     Dosage: UNK
  7. TRAMADOL HCL [Concomitant]
     Dosage: UNK
  8. BETAHISTINE [Concomitant]
     Dosage: UNK
  9. MALTOFER [Concomitant]
     Dosage: UNK
  10. BUDESONIDE [Concomitant]
     Dosage: UNK
  11. TRUSOPT [Concomitant]
     Dosage: UNK
  12. NITROMINT [Concomitant]
     Dosage: UNK
  13. ASPIRIN [Concomitant]
     Dosage: UNK
  14. MILGAMMA [Concomitant]
     Dosage: UNK
  15. XALATAN [Concomitant]
     Dosage: UNK
  16. MILURIT [Concomitant]
     Dosage: UNK
  17. METFORMIN [Concomitant]
     Dosage: UNK
  18. SUTENT [Suspect]
     Indication: METASTATIC RENAL CELL CARCINOMA
     Dosage: 50 MG, 1X/DAY
     Route: 048
     Dates: start: 20101028, end: 20110111
  19. RETAFYLLIN [Concomitant]
     Dosage: UNK
  20. IRBESARTAN AND HYDROCHLOROTHIAZIDE [Concomitant]
     Dosage: UNK
  21. CARVEDILOL [Concomitant]
     Dosage: UNK
  22. ATORVASTATIN [Concomitant]
     Dosage: UNK
  23. APO-FAMOTIDINE [Concomitant]
     Dosage: UNK
  24. TRIMETAZIDINE [Concomitant]
     Dosage: UNK
  25. NORVASC [Concomitant]
     Dosage: UNK

REACTIONS (1)
  - DYSPNOEA [None]
